FAERS Safety Report 17744353 (Version 1)
Quarter: 2020Q2

REPORT INFORMATION
  Report Type: Spontaneous
  Country: JP (occurrence: JP)
  Receive Date: 20200505
  Receipt Date: 20200505
  Transmission Date: 20200714
  Serious: Yes (Hospitalization, Other)
  Sender: FDA-Public Use
  Company Number: JP-LUPIN PHARMACEUTICALS INC.-2020-01836

PATIENT
  Age: 41 Year
  Sex: Female

DRUGS (1)
  1. HYDROXYCHLOROQUINE [Suspect]
     Active Substance: HYDROXYCHLOROQUINE
     Indication: SYSTEMIC LUPUS ERYTHEMATOSUS
     Dosage: UNK
     Route: 065

REACTIONS (7)
  - Blood pressure increased [Unknown]
  - Maternal exposure during pregnancy [Unknown]
  - Pelvic infection [Unknown]
  - Post procedural complication [Unknown]
  - Placenta accreta [Unknown]
  - Intrapartum haemorrhage [Unknown]
  - Infarction [Unknown]
